FAERS Safety Report 5148569-6 (Version None)
Quarter: 2006Q4

REPORT INFORMATION
  Report Type: 
  Country: None (occurrence: None)
  Receive Date: 20061107
  Receipt Date: 20061023
  Transmission Date: 20070319
  Serious: Yes (Hospitalization)
  Sender: FDA-Public Use
  Company Number: 2006SI009917

PATIENT
  Age: 57 Year
  Sex: Male
  Weight: 88.4514 kg

DRUGS (11)
  1. FENTANYL TRANSDERMAL SYSTEM [Suspect]
     Indication: BACK PAIN
     Dosage: SEE IMAGE
     Dates: end: 20060919
  2. FENTANYL TRANSDERMAL SYSTEM [Suspect]
     Indication: BACK PAIN
     Dosage: SEE IMAGE
     Dates: start: 20060909
  3. TOPIRAMATE [Concomitant]
  4. CLONAZEPAM [Concomitant]
  5. CYCLOBENZAPRINE HCL [Concomitant]
  6. VICODIN [Concomitant]
  7. VYTORIN [Concomitant]
  8. TOPROL-XL [Concomitant]
  9. VITAMIN [Concomitant]
  10. ACETYLSALICYLIC ACID SRT [Concomitant]
  11. ENALAPRIL MALEATE [Concomitant]

REACTIONS (5)
  - CONFUSIONAL STATE [None]
  - PHARMACEUTICAL PRODUCT COMPLAINT [None]
  - TREATMENT NONCOMPLIANCE [None]
  - VOMITING [None]
  - WRONG TECHNIQUE IN DRUG USAGE PROCESS [None]
